FAERS Safety Report 21509226 (Version 2)
Quarter: 2022Q4

REPORT INFORMATION
  Report Type: Spontaneous
  Country: CO (occurrence: CO)
  Receive Date: 20221026
  Receipt Date: 20221212
  Transmission Date: 20230112
  Serious: Yes (Hospitalization)
  Sender: FDA-Public Use
  Company Number: CO-VERTEX PHARMACEUTICALS-2022-015540

PATIENT
  Age: 8 Year
  Sex: Male
  Weight: 16 kg

DRUGS (3)
  1. SYMDEKO [Suspect]
     Active Substance: IVACAFTOR\TEZACAFTOR
     Indication: Cystic fibrosis
     Dosage: 1 DOSAGE FORM (50MG/150MG), BID
     Route: 048
     Dates: start: 20211223
  2. DORNASE ALFA [Concomitant]
     Active Substance: DORNASE ALFA
     Indication: Cystic fibrosis
     Dosage: 2.5 MG, QD
     Route: 048
  3. AZITHROMYCIN [Concomitant]
     Active Substance: AZITHROMYCIN
     Indication: Cystic fibrosis
     Dosage: 500 MG, QD
     Route: 048

REACTIONS (2)
  - Productive cough [Recovered/Resolved]
  - Rhinorrhoea [Recovered/Resolved]

NARRATIVE: CASE EVENT DATE: 20221007
